FAERS Safety Report 7226584-6 (Version None)
Quarter: 2011Q1

REPORT INFORMATION
  Report Type: 
  Country: None (occurrence: None)
  Receive Date: 20110114
  Receipt Date: 20110111
  Transmission Date: 20110831
  Serious: Yes (Other)
  Sender: FDA-Public Use
  Company Number: US-AMGEN-USASP2011002043

PATIENT

DRUGS (20)
  1. NPLATE [Suspect]
     Indication: IDIOPATHIC THROMBOCYTOPENIC PURPURA
     Dates: start: 20110103
  2. RITUXAN [Concomitant]
     Dosage: UNK UNK, QWK
  3. LUTEIN [Concomitant]
     Dosage: 20 MG, QD
     Route: 048
  4. OXYCODONE HCL [Concomitant]
     Dosage: 5 MG, PRN
     Route: 048
  5. ONCOVIN [Concomitant]
  6. CALCIUM [Concomitant]
     Dosage: 600 MG, QD
     Route: 048
  7. TEMAZEPAM [Concomitant]
     Dosage: 15 MG, QHS
     Route: 048
  8. SEPTRA DS [Concomitant]
     Dosage: UNK UNK, BID
     Route: 048
  9. REVLIMID [Concomitant]
     Dosage: 5 MG, QD
     Route: 048
  10. PREDNISONE [Concomitant]
  11. REQUIP [Concomitant]
     Dosage: 1 MG, TID
     Route: 048
  12. ACYCLOVIR [Concomitant]
     Dosage: 800 MG, BID
     Route: 048
  13. CYTOXAN [Concomitant]
  14. LYSINE [Concomitant]
     Dosage: 500 MG, QD
     Route: 048
  15. CYCLOPHOSPHAMIDE [Concomitant]
  16. FERROUS SULFATE [Concomitant]
     Indication: IRON DEFICIENCY
     Dosage: UNK UNK, TID
  17. ALLOPURINOL [Concomitant]
     Dosage: 300 MG, QD
     Route: 048
  18. CIPRO                              /00042702/ [Concomitant]
  19. DOXORUBICIN HCL [Concomitant]
  20. TRAMADOL HCL [Concomitant]
     Dosage: 50 MG, QHS
     Route: 048

REACTIONS (4)
  - WHITE BLOOD CELL COUNT DECREASED [None]
  - EPISTAXIS [None]
  - ABDOMINAL TENDERNESS [None]
  - FATIGUE [None]
